FAERS Safety Report 7141706-3 (Version None)
Quarter: 2010Q4

REPORT INFORMATION
  Report Type: 
  Country: None (occurrence: None)
  Receive Date: 20101207
  Receipt Date: 20101129
  Transmission Date: 20110411
  Serious: Yes (Death)
  Sender: FDA-Public Use
  Company Number: JP-JNJFOC-20101107333

PATIENT
  Sex: Male

DRUGS (6)
  1. FINIBAX [Suspect]
     Indication: SEPSIS
     Dosage: 0.5 G THREE TIMES DAILY
     Route: 041
  2. GRANULOCYTE COLONY-STIMULATING FACTOR [Suspect]
     Indication: PRODUCT USED FOR UNKNOWN INDICATION
     Route: 041
  3. AMIKACIN SULFATE [Suspect]
     Indication: PNEUMONIA
     Route: 041
  4. ALL OTHER NON-THERAPEUTIC PRODUCTS [Concomitant]
  5. PLATELETS [Concomitant]
  6. RED BLOOD CELL TRANSFUSION [Concomitant]
     Dosage: STOP DATE = 16-NOV-2010

REACTIONS (3)
  - ACUTE RESPIRATORY DISTRESS SYNDROME [None]
  - CEREBRAL HAEMORRHAGE [None]
  - JAUNDICE [None]
